FAERS Safety Report 13436954 (Version 1)
Quarter: 2017Q2

REPORT INFORMATION
  Report Type: Spontaneous
  Country: US (occurrence: US)
  Receive Date: 20170412
  Receipt Date: 20170412
  Transmission Date: 20170830
  Serious: Yes (Other)
  Sender: FDA-Public Use
  Company Number: US-SA-2016SA098367

PATIENT
  Age: 50 Year
  Sex: Female

DRUGS (1)
  1. ALLEGRA [Suspect]
     Active Substance: FEXOFENADINE HYDROCHLORIDE
     Indication: MULTIPLE ALLERGIES
     Dosage: FORM: GELATIN CAPSULE?STARTED WITHIN LAST 6 DAYS
     Route: 065
     Dates: start: 201605

REACTIONS (5)
  - Malaise [Unknown]
  - Irritability [Unknown]
  - Upper-airway cough syndrome [Unknown]
  - Condition aggravated [Unknown]
  - Hypertension [Unknown]
